FAERS Safety Report 20719650 (Version 1)
Quarter: 2022Q2

REPORT INFORMATION
  Report Type: Spontaneous
  Country: US (occurrence: US)
  Receive Date: 20220418
  Receipt Date: 20220418
  Transmission Date: 20220721
  Serious: Yes (Death, Hospitalization, Other)
  Sender: FDA-Public Use
  Company Number: US-PFIZER INC-2021757369

PATIENT
  Age: 77 Year
  Sex: Male
  Weight: 79.83 kg

DRUGS (2)
  1. SOMAVERT [Suspect]
     Active Substance: PEGVISOMANT
     Indication: Acromegaly
     Dosage: 15 MG, 1X/DAY (15MG IN THE EVENING ONCE A DAY )
     Dates: start: 2007
  2. SOMAVERT [Suspect]
     Active Substance: PEGVISOMANT
     Indication: Pituitary tumour

REACTIONS (7)
  - Gastrointestinal infection [Fatal]
  - Diarrhoea [Fatal]
  - Myocardial infarction [Unknown]
  - Cardiac valve disease [Unknown]
  - Unresponsive to stimuli [Unknown]
  - Hypotension [Unknown]
  - Intentional product use issue [Unknown]
